FAERS Safety Report 5004188-3 (Version None)
Quarter: 2006Q2

REPORT INFORMATION
  Report Type: 
  Country: None (occurrence: None)
  Receive Date: 20060517
  Receipt Date: 20060505
  Transmission Date: 20061013
  Serious: Yes (Congenital Anomaly)
  Sender: FDA-Public Use
  Company Number: US-JNJFOC-20060502311

PATIENT
  Sex: Female
  Weight: 0.59 kg

DRUGS (2)
  1. TOPAMAX [Suspect]
     Indication: CONVULSION PROPHYLAXIS
  2. PLAQUENIL [Concomitant]

REACTIONS (2)
  - CONGENITAL CLEFT HAND [None]
  - LIMB REDUCTION DEFECT [None]
